FAERS Safety Report 23035454 (Version 12)
Quarter: 2024Q1

REPORT INFORMATION
  Report Type: Report from Study
  Country: CA (occurrence: CA)
  Receive Date: 20231006
  Receipt Date: 20240327
  Transmission Date: 20240410
  Serious: Yes (Other)
  Sender: FDA-Public Use
  Company Number: CA-JNJFOC-20230861309

PATIENT
  Age: 67 Year
  Sex: Female
  Weight: 64 kg

DRUGS (4)
  1. REMICADE [Suspect]
     Active Substance: INFLIXIMAB
     Indication: Colitis ulcerative
     Route: 041
     Dates: start: 20230815
  2. REMICADE [Suspect]
     Active Substance: INFLIXIMAB
     Route: 041
     Dates: start: 2023
  3. REMICADE [Suspect]
     Active Substance: INFLIXIMAB
     Dosage: STRENGTH: 5 MG/KG
     Route: 041
     Dates: start: 2023
  4. REMICADE [Suspect]
     Active Substance: INFLIXIMAB
     Dosage: STRENGTH: 5 MG/KG
     Route: 041
     Dates: start: 20230815

REACTIONS (9)
  - Breast cancer [Not Recovered/Not Resolved]
  - Colitis ulcerative [Unknown]
  - Nasopharyngitis [Recovering/Resolving]
  - Cystitis [Recovered/Resolved]
  - Vertigo [Unknown]
  - Headache [Recovering/Resolving]
  - Fatigue [Unknown]
  - Therapeutic response shortened [Unknown]
  - Off label use [Unknown]

NARRATIVE: CASE EVENT DATE: 20230101
